FAERS Safety Report 21656240 (Version 1)
Quarter: 2022Q4

REPORT INFORMATION
  Report Type: Spontaneous
  Country: US (occurrence: US)
  Receive Date: 20221129
  Receipt Date: 20221129
  Transmission Date: 20230113
  Serious: Yes (Other)
  Sender: FDA-Public Use
  Company Number: US-MALLINCKRODT-T202206127

PATIENT
  Sex: Female
  Weight: 72 kg

DRUGS (1)
  1. H.P. ACTHAR [Suspect]
     Active Substance: CORTICOTROPIN
     Indication: Rheumatoid arthritis
     Dosage: 80 UNITS, 1 MILLILITER, TWICE A WEEK
     Route: 058
     Dates: start: 202210

REACTIONS (5)
  - Back disorder [Unknown]
  - Spinal disorder [Unknown]
  - Fall [Unknown]
  - Pain [Unknown]
  - Insomnia [Not Recovered/Not Resolved]

NARRATIVE: CASE EVENT DATE: 20220101
